FAERS Safety Report 6533486-7 (Version None)
Quarter: 2010Q1

REPORT INFORMATION
  Report Type: 
  Country: None (occurrence: None)
  Receive Date: 20100111
  Receipt Date: 20100104
  Transmission Date: 20100710
  Serious: Yes (Death, Life-Threatening, Hospitalization, Other)
  Sender: FDA-Public Use
  Company Number: US-BAXTER-2009BH018303

PATIENT
  Age: 64 Year
  Sex: Female

DRUGS (32)
  1. HEPARIN SODIUM INJECTION [Suspect]
     Indication: INTRAVENOUS CATHETER MANAGEMENT
     Route: 065
     Dates: start: 20071101, end: 20071114
  2. HEPARIN SODIUM INJECTION [Suspect]
     Indication: THROMBOSIS PROPHYLAXIS
     Route: 065
     Dates: start: 20071101, end: 20071114
  3. HEPARIN SODIUM INJECTION [Suspect]
     Route: 065
     Dates: start: 20071115, end: 20071115
  4. HEPARIN SODIUM INJECTION [Suspect]
     Route: 065
     Dates: start: 20071115, end: 20071115
  5. HEPARIN SODIUM INJECTION [Suspect]
     Route: 065
     Dates: start: 20071125, end: 20071125
  6. HEPARIN SODIUM INJECTION [Suspect]
     Route: 065
     Dates: start: 20071125, end: 20071125
  7. HEPARIN SODIUM INJECTION [Suspect]
     Route: 065
     Dates: start: 20071122, end: 20071122
  8. HEPARIN SODIUM INJECTION [Suspect]
     Route: 065
     Dates: start: 20071122, end: 20071122
  9. HEPARIN SODIUM INJECTION [Suspect]
     Route: 065
     Dates: start: 20071127, end: 20071127
  10. HEPARIN SODIUM INJECTION [Suspect]
     Route: 065
     Dates: start: 20071127, end: 20071127
  11. HEPARIN SODIUM INJECTION [Suspect]
     Route: 065
     Dates: start: 20071129, end: 20071129
  12. HEPARIN SODIUM INJECTION [Suspect]
     Route: 065
     Dates: start: 20071129, end: 20071129
  13. HEPARIN SODIUM INJECTION [Suspect]
     Route: 065
     Dates: start: 20071202, end: 20071202
  14. HEPARIN SODIUM INJECTION [Suspect]
     Route: 065
     Dates: start: 20071202, end: 20071202
  15. HEPARIN SODIUM INJECTION [Suspect]
     Route: 065
     Dates: start: 20071206, end: 20071206
  16. HEPARIN SODIUM INJECTION [Suspect]
     Route: 065
     Dates: start: 20071206, end: 20071206
  17. HEPARIN SODIUM INJECTION [Suspect]
     Route: 065
     Dates: start: 20071203, end: 20071203
  18. HEPARIN SODIUM INJECTION [Suspect]
     Route: 065
     Dates: start: 20071203, end: 20071203
  19. ALPRAZOLAM [Concomitant]
     Indication: DRUG USE FOR UNKNOWN INDICATION
     Route: 065
  20. ASPIRIN [Concomitant]
     Indication: DRUG USE FOR UNKNOWN INDICATION
     Route: 065
  21. BENAZEPRIL HYDROCHLORIDE [Concomitant]
     Indication: DRUG USE FOR UNKNOWN INDICATION
     Route: 065
  22. DILTIAZEM [Concomitant]
     Indication: DRUG USE FOR UNKNOWN INDICATION
     Route: 065
  23. DOCUSATE SODIUM [Concomitant]
     Indication: DRUG USE FOR UNKNOWN INDICATION
     Route: 065
  24. FENTANYL-100 [Concomitant]
     Indication: DRUG USE FOR UNKNOWN INDICATION
     Route: 065
  25. FUROSEMIDE [Concomitant]
     Indication: DRUG USE FOR UNKNOWN INDICATION
     Route: 065
  26. GLYBURIDE [Concomitant]
     Indication: DRUG USE FOR UNKNOWN INDICATION
     Route: 065
  27. MAXIPIME [Concomitant]
     Indication: DRUG USE FOR UNKNOWN INDICATION
     Route: 042
  28. NORMAL SALINE [Concomitant]
     Indication: DRUG USE FOR UNKNOWN INDICATION
     Route: 042
  29. SIMVASTATIN [Concomitant]
     Indication: DRUG USE FOR UNKNOWN INDICATION
     Route: 065
  30. TYLENOL W/ CODEINE [Concomitant]
     Indication: DRUG USE FOR UNKNOWN INDICATION
     Route: 065
  31. VANCOMYCIN HCL [Concomitant]
     Indication: DRUG USE FOR UNKNOWN INDICATION
     Route: 042
  32. LOVENOX [Concomitant]
     Indication: DRUG USE FOR UNKNOWN INDICATION
     Route: 065

REACTIONS (8)
  - BREAST CANCER [None]
  - CARDIO-RESPIRATORY ARREST [None]
  - DYSPNOEA [None]
  - HYPERSENSITIVITY [None]
  - HYPOTENSION [None]
  - MALIGNANT PLEURAL EFFUSION [None]
  - SEPSIS [None]
  - TYPE 2 DIABETES MELLITUS [None]
